FAERS Safety Report 6526235-X (Version None)
Quarter: 2009Q4

REPORT INFORMATION
  Report Type: 
  Country: None (occurrence: None)
  Receive Date: 20091228
  Receipt Date: 20091208
  Transmission Date: 20100525
  Serious: Yes (Life-Threatening)
  Sender: FDA-Public Use
  Company Number: 20090588

PATIENT
  Age: 10 Month
  Sex: Female

DRUGS (2)
  1. MAGNESIUM SULFATE INJECTION, USP (2602-25) 500 MG/ML [Suspect]
     Dosage: 15 G OVER 2 HOURS INTRAVENOUS DRIP
     Route: 041
  2. CISPLATIN [Concomitant]

REACTIONS (18)
  - BLOOD BICARBONATE DECREASED [None]
  - BLOOD CALCIUM DECREASED [None]
  - BLOOD GLUCOSE INCREASED [None]
  - BLOOD PH DECREASED [None]
  - BLOOD POTASSIUM INCREASED [None]
  - CYANOSIS [None]
  - DIALYSIS [None]
  - HAEMOGLOBIN DECREASED [None]
  - HYPERMAGNESAEMIA [None]
  - OVERDOSE [None]
  - PCO2 INCREASED [None]
  - PERIPHERAL COLDNESS [None]
  - PO2 DECREASED [None]
  - PULSE ABSENT [None]
  - PUPIL FIXED [None]
  - PUPILLARY REFLEX IMPAIRED [None]
  - UNRESPONSIVE TO STIMULI [None]
  - VOMITING [None]
